FAERS Safety Report 8460282-6 (Version None)
Quarter: 2012Q2

REPORT INFORMATION
  Report Type: 
  Country: None (occurrence: None)
  Receive Date: 20120622
  Receipt Date: 20120611
  Transmission Date: 20120825
  Serious: Yes (Hospitalization)
  Sender: FDA-Public Use
  Company Number: US-ACTELION-A-US2012-63804

PATIENT

DRUGS (4)
  1. TRACLEER [Suspect]
     Indication: PULMONARY ARTERIAL HYPERTENSION
     Dosage: UNK
     Route: 048
     Dates: start: 20060511
  2. REVATIO [Concomitant]
  3. COUMADIN [Concomitant]
  4. ENOXAPARIN [Concomitant]

REACTIONS (7)
  - RENAL DISORDER [None]
  - KIDNEY INFECTION [None]
  - DRUG DOSE OMISSION [None]
  - PNEUMONIA [None]
  - LIVER DISORDER [None]
  - CHEST PAIN [None]
  - MENTAL IMPAIRMENT [None]
